FAERS Safety Report 12896578 (Version 1)
Quarter: 2016Q4

REPORT INFORMATION
  Report Type: Spontaneous
  Country: US (occurrence: US)
  Receive Date: 20161028
  Receipt Date: 20161028
  Transmission Date: 20170207
  Serious: No
  Sender: FDA-Public Use
  Company Number: None

PATIENT
  Age: 64 Year
  Weight: 67.5 kg

DRUGS (3)
  1. WP THYROID 113.75, 1.5 QD [Suspect]
     Active Substance: THYROID, PORCINE
     Indication: HYPOTHYROIDISM
     Dosage: ?          OTHER FREQUENCY:1.5 PILLS QD;?
     Route: 048
     Dates: start: 20160808, end: 20161019
  2. WELLBUTRIN XL [Concomitant]
     Active Substance: BUPROPION HYDROCHLORIDE
  3. BIOTIN [Concomitant]
     Active Substance: BIOTIN

REACTIONS (7)
  - Neck pain [None]
  - Alopecia [None]
  - Hypoaesthesia [None]
  - Musculoskeletal pain [None]
  - Heart rate increased [None]
  - Anxiety [None]
  - Insomnia [None]

NARRATIVE: CASE EVENT DATE: 20160826
